FAERS Safety Report 8435302-5 (Version None)
Quarter: 2012Q2

REPORT INFORMATION
  Report Type: 
  Country: None (occurrence: None)
  Receive Date: 20120608
  Receipt Date: 20120601
  Transmission Date: 20120825
  Serious: Yes (Hospitalization)
  Sender: FDA-Public Use
  Company Number: 2012SP027602

PATIENT
  Age: 52 Year
  Sex: Male

DRUGS (6)
  1. BISOPROLOL FUMARATE [Concomitant]
  2. CLONAZEPAM [Suspect]
     Indication: PRODUCT USED FOR UNKNOWN INDICATION
     Dosage: 3 DF; ;PO
     Route: 048
     Dates: start: 20120503, end: 20120504
  3. LORAZEPAM [Suspect]
     Indication: PRODUCT USED FOR UNKNOWN INDICATION
     Dosage: 11 DF; ;PO
     Route: 048
     Dates: start: 20120503, end: 20120504
  4. METFORMIN HCL [Concomitant]
  5. ASPIRIN [Concomitant]
  6. MIRTAZAPINE [Suspect]
     Indication: PRODUCT USED FOR UNKNOWN INDICATION
     Dosage: 3 DF; ;PO
     Route: 048
     Dates: start: 20120504, end: 20120504

REACTIONS (3)
  - SUICIDE ATTEMPT [None]
  - BRADYCARDIA [None]
  - BRADYPHRENIA [None]
